FAERS Safety Report 5198707-4 (Version None)
Quarter: 2007Q1

REPORT INFORMATION
  Report Type: 
  Country: None (occurrence: None)
  Receive Date: 20070104
  Receipt Date: 20061222
  Transmission Date: 20070707
  Serious: Yes (Hospitalization)
  Sender: FDA-Public Use
  Company Number: US-ELI_LILLY_AND_COMPANY-US200612004202

PATIENT
  Age: 12 Year
  Sex: Female

DRUGS (1)
  1. STRATTERA [Suspect]

REACTIONS (4)
  - HAEMATURIA [None]
  - NEPHRITIS [None]
  - PROTEINURIA [None]
  - URINE COLOUR ABNORMAL [None]
